FAERS Safety Report 13845593 (Version 1)
Quarter: 2017Q3

REPORT INFORMATION
  Report Type: Spontaneous
  Country: DE (occurrence: DE)
  Receive Date: 20170808
  Receipt Date: 20170808
  Transmission Date: 20171127
  Serious: Yes (Hospitalization)
  Sender: FDA-Public Use
  Company Number: DE-UNICHEM LABORATORIES LIMITED-UCM201412-000263

PATIENT
  Age: 38 Year
  Sex: Female

DRUGS (1)
  1. TOPIRAMATE. [Suspect]
     Active Substance: TOPIRAMATE
     Indication: MIGRAINE

REACTIONS (5)
  - Choroidal effusion [Unknown]
  - Myopia [Recovered/Resolved]
  - Blindness [Recovered/Resolved]
  - Product use in unapproved indication [Unknown]
  - Angle closure glaucoma [Unknown]
